FAERS Safety Report 5619687-0 (Version None)
Quarter: 2008Q1

REPORT INFORMATION
  Report Type: 
  Country: None (occurrence: None)
  Receive Date: 20080208
  Receipt Date: 20071025
  Transmission Date: 20080703
  Serious: No
  Sender: FDA-Public Use
  Company Number: A0688479A

PATIENT
  Age: 5 Year
  Sex: Male

DRUGS (2)
  1. ALTABAX [Suspect]
     Dosage: 1APP PER DAY
     Route: 061
     Dates: start: 20071009, end: 20071009
  2. MOTRIN [Concomitant]

REACTIONS (2)
  - ADVERSE DRUG REACTION [None]
  - PRURITUS [None]
